FAERS Safety Report 9434816 (Version 1)
Quarter: 2013Q3

REPORT INFORMATION
  Report Type: Spontaneous
  Country: US (occurrence: US)
  Receive Date: 20130801
  Receipt Date: 20130801
  Transmission Date: 20140515
  Serious: Yes (Other)
  Sender: FDA-Public Use
  Company Number: US-SHIRE-ALL1-2013-04915

PATIENT
  Sex: Female

DRUGS (1)
  1. PENTASA [Suspect]
     Indication: PRODUCT USED FOR UNKNOWN INDICATION
     Dosage: UNK, UNKNOWN
     Route: 048

REACTIONS (9)
  - Cerebrovascular accident [Unknown]
  - Hallucination [Unknown]
  - Liver disorder [Unknown]
  - Immune system disorder [Unknown]
  - Stomatitis [Unknown]
  - Blood count abnormal [Unknown]
  - Abdominal pain [Unknown]
  - Asthenia [Unknown]
  - Medication error [Unknown]
